FAERS Safety Report 9250258 (Version 2)
Quarter: 2013Q2

REPORT INFORMATION
  Report Type: Spontaneous
  Country: CL (occurrence: CL)
  Receive Date: 20130424
  Receipt Date: 20130508
  Transmission Date: 20140414
  Serious: Yes (Other)
  Sender: FDA-Public Use
  Company Number: CL-009507513-1304CHL012829

PATIENT
  Sex: Female

DRUGS (2)
  1. NUVARING [Suspect]
     Indication: CONTRACEPTION
     Dosage: DELIVERS 0.120 MG/0.015 MG PER DAY
     Route: 067
     Dates: start: 2011, end: 201303
  2. ANALGESIC (UNSPECIFIED) [Concomitant]

REACTIONS (5)
  - Abortion threatened [Unknown]
  - Unintended pregnancy [Not Recovered/Not Resolved]
  - Haemorrhage in pregnancy [Recovered/Resolved]
  - Pain [Recovered/Resolved]
  - Inappropriate schedule of drug administration [Unknown]
